FAERS Safety Report 9377000 (Version 1)
Quarter: 2013Q3

REPORT INFORMATION
  Report Type: Report from Study
  Country: US (occurrence: US)
  Receive Date: 20130701
  Receipt Date: 20130701
  Transmission Date: 20140515
  Serious: Yes (Hospitalization)
  Sender: FDA-Public Use
  Company Number: PHEH2013US013903

PATIENT
  Sex: Female

DRUGS (1)
  1. AFINITOR [Suspect]
     Indication: SMALL INTESTINE CARCINOMA
     Dosage: 5 MG, QD
     Route: 048

REACTIONS (3)
  - Gastric disorder [Unknown]
  - Dehydration [Unknown]
  - Vomiting [Unknown]
